FAERS Safety Report 20331915 (Version 1)
Quarter: 2022Q1

REPORT INFORMATION
  Report Type: Spontaneous
  Country: US (occurrence: US)
  Receive Date: 20220113
  Receipt Date: 20220113
  Transmission Date: 20220424
  Serious: Yes (Other)
  Sender: FDA-Public Use
  Company Number: US-PFIZER INC-202200012289

PATIENT
  Age: 84 Year
  Sex: Male

DRUGS (1)
  1. VYNDAMAX [Suspect]
     Active Substance: TAFAMIDIS
     Dosage: 61 MG

REACTIONS (43)
  - Congenital neuropathy [Unknown]
  - Spinal cord compression [Unknown]
  - Cardiac failure congestive [Unknown]
  - Atrial fibrillation [Unknown]
  - Thrombocytopenia [Unknown]
  - Amyloidosis [Unknown]
  - Erectile dysfunction [Unknown]
  - Type 2 diabetes mellitus [Unknown]
  - Arrhythmia [Unknown]
  - Hypokalaemia [Unknown]
  - Mitral valve incompetence [Unknown]
  - Deafness [Unknown]
  - Radiculitis brachial [Unknown]
  - Dyspnoea [Unknown]
  - Oedema [Unknown]
  - Anaemia [Unknown]
  - Intervertebral disc degeneration [Unknown]
  - Dyslipidaemia [Unknown]
  - Essential hypertension [Unknown]
  - Osteoarthritis [Unknown]
  - Neuritis [Unknown]
  - Lumbar spinal stenosis [Unknown]
  - Gastrooesophageal reflux disease [Unknown]
  - Dysphagia [Unknown]
  - Constipation [Unknown]
  - Vitamin B12 deficiency [Unknown]
  - Arthralgia [Unknown]
  - Sleep apnoea syndrome [Unknown]
  - Hyponatraemia [Unknown]
  - Asthenia [Unknown]
  - Left ventricular dysfunction [Unknown]
  - Cognitive disorder [Unknown]
  - Anxiety [Unknown]
  - Depression [Unknown]
  - Urinary hesitation [Unknown]
  - Fall [Unknown]
  - Overweight [Unknown]
  - Hypomagnesaemia [Unknown]
  - Lymphoedema [Unknown]
  - Insomnia [Unknown]
  - Urinary incontinence [Unknown]
  - Dyspnoea exertional [Unknown]
  - Oedema peripheral [Unknown]
